FAERS Safety Report 6285435-7 (Version None)
Quarter: 2009Q3

REPORT INFORMATION
  Report Type: 
  Country: None (occurrence: None)
  Receive Date: 20090727
  Receipt Date: 20090714
  Transmission Date: 20100115
  Serious: Yes (Death)
  Sender: FDA-Public Use
  Company Number: US-JNJFOC-20090705199

PATIENT
  Sex: Male

DRUGS (1)
  1. MYLANTA [Suspect]
     Indication: DRUG USE FOR UNKNOWN INDICATION
     Dosage: UNSPECIFIED DOSE AND FREQUENCY FOR 3-4 YEARS
     Route: 048

REACTIONS (1)
  - NONSPECIFIC REACTION [None]
